FAERS Safety Report 8197126-6 (Version None)
Quarter: 2012Q1

REPORT INFORMATION
  Report Type: 
  Country: None (occurrence: None)
  Receive Date: 20120309
  Receipt Date: 20120228
  Transmission Date: 20120608
  Serious: Yes (Death, Life-Threatening, Other)
  Sender: FDA-Public Use
  Company Number: JP-GENZYME-THYM-1002144

PATIENT
  Sex: Male
  Weight: 15 kg

DRUGS (97)
  1. URSODIOL [Concomitant]
     Indication: PROPHYLAXIS
     Dosage: 75 MG, BID
     Route: 065
     Dates: start: 20090513, end: 20090519
  2. CEFAZOLIN [Concomitant]
     Indication: PRODUCT USED FOR UNKNOWN INDICATION
     Dosage: UNK
     Route: 065
     Dates: start: 20090512, end: 20090512
  3. PREDNISOLONE SODIUM SUCCINATE INJ [Concomitant]
     Dosage: 2 MG, QD
     Route: 065
     Dates: start: 20090527, end: 20090602
  4. MICAFUNGIN SODIUM [Concomitant]
     Indication: INFECTION PROPHYLAXIS
     Dosage: 25 MG, QD
     Route: 065
     Dates: start: 20090521, end: 20090615
  5. PREDNISOLONE [Concomitant]
     Dosage: 1.5 MG, BID
     Route: 065
     Dates: start: 20090520, end: 20090522
  6. PREDNISOLONE [Concomitant]
     Dosage: 16 MG, BID
     Route: 065
     Dates: start: 20090626, end: 20090626
  7. PREDNISOLONE [Concomitant]
     Dosage: 8 MG, BID
     Route: 065
     Dates: start: 20090627, end: 20090628
  8. MIDAZOLAM [Concomitant]
     Dosage: 10 MG, QD
     Route: 065
     Dates: start: 20090625, end: 20090625
  9. AMBROXOL [Concomitant]
     Indication: PRODUCT USED FOR UNKNOWN INDICATION
     Dosage: 6 MG, BID
     Route: 065
     Dates: start: 20090512, end: 20090512
  10. CLARITHROMYCIN [Concomitant]
     Indication: PRODUCT USED FOR UNKNOWN INDICATION
     Dosage: 100 MG, QD
     Route: 065
     Dates: start: 20090512, end: 20090512
  11. URSODIOL [Concomitant]
     Dosage: 75 MG, BID
     Route: 065
     Dates: start: 20090523, end: 20090623
  12. TACROLIMUS [Concomitant]
     Dosage: 0.4 MG, BID
     Route: 065
     Dates: start: 20090619, end: 20090624
  13. TACROLIMUS [Concomitant]
     Dosage: 0.3 MG, QD
     Route: 065
     Dates: start: 20090520, end: 20090521
  14. LIDOCAINE [Concomitant]
     Dosage: 10 ML, QD
     Route: 065
     Dates: start: 20090625, end: 20090625
  15. HEPARIN [Concomitant]
     Dosage: 10 ML, QD
     Route: 065
     Dates: start: 20090630, end: 20090630
  16. HEPARIN [Concomitant]
     Dosage: 2.25 ML, QD
     Dates: start: 20090512, end: 20090617
  17. FLUDARABINE PHOSPHATE [Concomitant]
     Indication: PRIMARY IMMUNODEFICIENCY SYNDROME
     Dosage: 20 MG, QD
     Route: 065
     Dates: start: 20090513, end: 20090518
  18. CYCLOPHOSPHAMIDE [Concomitant]
     Dosage: 20 MG, QD
     Route: 065
     Dates: start: 20090515, end: 20090518
  19. MESNA [Concomitant]
     Indication: PRODUCT USED FOR UNKNOWN INDICATION
     Dosage: 600 MG, QD
     Route: 065
     Dates: start: 20090515, end: 20090518
  20. PREDNISOLONE SODIUM SUCCINATE INJ [Concomitant]
     Dosage: 2.15 MG, QD
     Route: 065
     Dates: start: 20090608, end: 20090608
  21. FLOMOXEF SODIUM [Concomitant]
     Indication: PRODUCT USED FOR UNKNOWN INDICATION
     Dosage: 1.5 G, QD
     Route: 065
     Dates: start: 20090521, end: 20090605
  22. TOTAL BODY IRRADIATION [Concomitant]
     Indication: BONE MARROW CONDITIONING REGIMEN
     Dosage: UNK
     Route: 065
     Dates: start: 20090519, end: 20090520
  23. PREDNISOLONE [Concomitant]
     Dosage: 7.5 MG, BID
     Route: 065
     Dates: start: 20090629, end: 20090629
  24. TEPRENONE [Concomitant]
     Dosage: UNK
     Route: 065
     Dates: start: 20090516, end: 20090517
  25. URSODIOL [Concomitant]
     Dosage: 150 MG, BID
     Route: 065
     Dates: start: 20090520, end: 20090522
  26. CANDESARTAN CILEXETIL [Concomitant]
     Indication: PRODUCT USED FOR UNKNOWN INDICATION
     Dosage: 2 MG, QD
     Route: 065
     Dates: start: 20090520, end: 20090523
  27. TACROLIMUS [Concomitant]
     Dosage: 0.6 MG, BID
     Route: 065
     Dates: start: 20090626, end: 20090626
  28. HEPARIN [Concomitant]
     Indication: PROPHYLAXIS
     Dosage: 10 ML, QD
     Route: 065
     Dates: start: 20090511, end: 20090511
  29. HEPARIN [Concomitant]
     Dosage: 10 ML, QD
     Route: 065
     Dates: start: 20090617, end: 20090617
  30. PREDNISOLONE SODIUM SUCCINATE INJ [Concomitant]
     Dosage: 3 MG, QD
     Route: 065
     Dates: start: 20090521, end: 20090523
  31. PREDNISOLONE SODIUM SUCCINATE INJ [Concomitant]
     Dosage: 1.8 MG, QD
     Route: 065
     Dates: start: 20090616, end: 20090616
  32. MANGANESE CHLORIDE ZINC SULFATE COMBINED DRUG [Concomitant]
     Indication: PRODUCT USED FOR UNKNOWN INDICATION
     Dosage: 1 ML, QD
     Route: 065
     Dates: start: 20090524, end: 20090617
  33. PREDNISOLONE [Concomitant]
     Dosage: 7 MG, BID
     Route: 065
     Dates: start: 20090630, end: 20090630
  34. TEPRENONE [Concomitant]
     Dosage: UNK
     Route: 065
     Dates: start: 20090520, end: 20090522
  35. MIDAZOLAM [Concomitant]
     Dosage: 2.5 MG, QD
     Route: 065
     Dates: start: 20090511, end: 20090511
  36. AMBROXOL [Concomitant]
     Dosage: 6 MG, BID
     Route: 065
     Dates: start: 20090523, end: 20090530
  37. CLARITHROMYCIN [Concomitant]
     Dosage: 200 MG, QD
     Route: 065
     Dates: start: 20090518, end: 20090522
  38. CLARITHROMYCIN [Concomitant]
     Dosage: 100 MG, QD
     Route: 065
     Dates: start: 20090523, end: 20090606
  39. HEPARIN [Concomitant]
     Indication: PRODUCT USED FOR UNKNOWN INDICATION
     Dosage: 25 MG, UNK
     Route: 065
     Dates: start: 20090514, end: 20090514
  40. CANDESARTAN CILEXETIL [Concomitant]
     Dosage: 2 MG, QD
     Route: 065
     Dates: start: 20090527, end: 20090530
  41. TACROLIMUS [Concomitant]
     Indication: PROPHYLAXIS AGAINST GRAFT VERSUS HOST DISEASE
     Dosage: 10 G, UNK
     Route: 065
     Dates: start: 20090608, end: 20090608
  42. FLUOROMETHOLONE [Concomitant]
     Indication: PRODUCT USED FOR UNKNOWN INDICATION
     Dosage: UNK
     Route: 065
     Dates: start: 20090608, end: 20090608
  43. PREDNISOLONE SODIUM SUCCINATE INJ [Concomitant]
     Dosage: 2 MG, QD
     Route: 065
     Dates: start: 20090609, end: 20090615
  44. PREDNISOLONE SODIUM SUCCINATE INJ [Concomitant]
     Dosage: 0.8 MG, QD
     Route: 065
     Dates: start: 20090616, end: 20090616
  45. METHOTREXATE [Concomitant]
     Dosage: 6.5 MG, QD
     Route: 065
     Dates: start: 20090601, end: 20090601
  46. MEROPENEM [Concomitant]
     Indication: INFECTION PROPHYLAXIS
     Dosage: 0.6 G, QD
     Route: 065
     Dates: start: 20090606, end: 20090606
  47. PREDNISOLONE [Concomitant]
     Dosage: 9 MG, BID
     Route: 065
     Dates: start: 20090617, end: 20090630
  48. AMBROXOL [Concomitant]
     Dosage: 12 MG, BID
     Route: 065
     Dates: start: 20090520, end: 20090522
  49. CLARITHROMYCIN [Concomitant]
     Dosage: 200 MG, QD
     Route: 065
     Dates: start: 20090513, end: 20090513
  50. SODIUM PICOSULFATE [Concomitant]
     Indication: PRODUCT USED FOR UNKNOWN INDICATION
     Dosage: 10 ML, UNK
     Route: 065
     Dates: start: 20090515, end: 20090515
  51. TACROLIMUS [Concomitant]
     Dosage: 0.3 MG, BID
     Route: 065
     Dates: start: 20090627, end: 20090630
  52. WHITE PETROLEUM [Concomitant]
     Indication: PRODUCT USED FOR UNKNOWN INDICATION
     Dosage: 50 G, UNK
     Route: 065
     Dates: start: 20090609, end: 20090609
  53. METHYLPREDNISOLONE SODIUM SUCCINATE [Concomitant]
     Indication: PREMEDICATION
     Dosage: 15 MG, QD
     Route: 065
     Dates: start: 20090513, end: 20090515
  54. RAMOSETRON HYDROCHLORIDE [Concomitant]
     Dosage: 0.3 MG, QD
     Route: 065
     Dates: start: 20090520, end: 20090520
  55. RAMOSETRON HYDROCHLORIDE [Concomitant]
     Dosage: 60 MG, QD
     Route: 065
     Dates: start: 20090825
  56. PREDNISOLONE SODIUM SUCCINATE INJ [Concomitant]
     Dosage: 1.5 MG, QD
     Route: 065
     Dates: start: 20090603, end: 20090607
  57. PREDNISOLONE SODIUM SUCCINATE INJ [Concomitant]
     Dosage: UNK
     Route: 065
     Dates: start: 20090617, end: 20090617
  58. METHOTREXATE [Concomitant]
     Indication: PROPHYLAXIS AGAINST GRAFT VERSUS HOST DISEASE
     Dosage: 10 MG, QD
     Route: 065
     Dates: start: 20090522, end: 20090522
  59. METHOTREXATE [Concomitant]
     Dosage: 6.5 MG, QD
     Route: 065
     Dates: start: 20090524, end: 20090524
  60. ACYCLOVIR [Concomitant]
     Indication: PROPHYLAXIS
     Dosage: 75 MG, BID
     Route: 065
     Dates: start: 20090522, end: 20090615
  61. PREDNISOLONE [Concomitant]
     Dosage: 2 MG, BID
     Route: 065
     Dates: start: 20090516, end: 20090517
  62. AMBROXOL [Concomitant]
     Dosage: 12 MG, BID
     Route: 065
     Dates: start: 20090513, end: 20090513
  63. TACROLIMUS [Concomitant]
     Dosage: 0.6 MG, QD
     Route: 065
     Dates: start: 20090522, end: 20090525
  64. DIFLUPREDNATE [Concomitant]
     Indication: PRODUCT USED FOR UNKNOWN INDICATION
     Dosage: 10 G, UNK
     Route: 065
     Dates: start: 20090608, end: 20090608
  65. PREDNISOLONE VALEROACETATE [Concomitant]
     Indication: PRODUCT USED FOR UNKNOWN INDICATION
     Dosage: 10 G, UNK
     Route: 065
     Dates: start: 20090610, end: 20090610
  66. HEPARIN [Concomitant]
     Dosage: 10 ML, QD
     Route: 065
     Dates: start: 20090622, end: 20090622
  67. HEPARIN [Concomitant]
     Dosage: 20 ML, QD
     Route: 065
     Dates: start: 20090625, end: 20090625
  68. HEPARIN [Concomitant]
     Dosage: 2.25 ML, QD
     Route: 065
     Dates: start: 20090512, end: 20090617
  69. GRANISETRON HCL [Concomitant]
     Indication: PRODUCT USED FOR UNKNOWN INDICATION
     Dosage: 2 MG, QD
     Route: 065
     Dates: start: 20090513, end: 20090520
  70. PREDNISOLONE SODIUM SUCCINATE INJ [Concomitant]
     Indication: INFECTION PROPHYLAXIS
     Dosage: 2 MG, QD
     Route: 065
     Dates: start: 20090520, end: 20090520
  71. FLOMOXEF SODIUM [Concomitant]
     Dosage: 1 G, QD
     Dates: start: 20090521, end: 20090606
  72. PREDNISOLONE [Concomitant]
     Dosage: 8 MG, BID
     Route: 065
     Dates: start: 20090624, end: 20090625
  73. PREDNISOLONE [Concomitant]
     Dosage: UNK
     Route: 065
     Dates: start: 20091124, end: 20091214
  74. TEPRENONE [Concomitant]
     Indication: PRODUCT USED FOR UNKNOWN INDICATION
     Dosage: UNK
     Route: 065
     Dates: start: 20090511, end: 20090513
  75. AMBROXOL [Concomitant]
     Dosage: 6 MG, BID
     Route: 065
     Dates: start: 20090514, end: 20090519
  76. TACROLIMUS [Concomitant]
     Dosage: 0.3 MG, QD
     Route: 065
     Dates: start: 20090625, end: 20090625
  77. TACROLIMUS [Concomitant]
     Dosage: 0.4 MG, QD
     Route: 065
     Dates: start: 20090526, end: 20090615
  78. ITRACONAZOLE [Concomitant]
     Indication: INFECTION PROPHYLAXIS
     Dosage: 7 ML, QD
     Route: 065
     Dates: start: 20090615, end: 20091215
  79. LIDOCAINE [Concomitant]
     Indication: PRODUCT USED FOR UNKNOWN INDICATION
     Dosage: 10 ML, QD
     Route: 065
     Dates: start: 20090511, end: 20090511
  80. CHLORPHENIRAMINE MALEATE [Concomitant]
     Indication: PREMEDICATION
     Dosage: 2.5 MG, QD
     Route: 065
     Dates: start: 20090513, end: 20090515
  81. RAMOSETRON HYDROCHLORIDE [Concomitant]
     Indication: PRODUCT USED FOR UNKNOWN INDICATION
     Dosage: 0.15 MG, QD
     Route: 065
     Dates: start: 20090518, end: 20090518
  82. METHOTREXATE [Concomitant]
     Dosage: 6.5 MG, QD
     Route: 065
     Dates: start: 20090527, end: 20090527
  83. MIXED AMINO ACID CARBOHYDRATE ELECTROLYTE VITAMIN COMBINED DRUG [Concomitant]
     Indication: PRODUCT USED FOR UNKNOWN INDICATION
     Dosage: 1103 ML, QD
     Route: 065
     Dates: start: 20090524, end: 20090617
  84. LENOGRASTIM [Concomitant]
     Indication: COLONY STIMULATING FACTOR THERAPY
     Dosage: 100 MCG, QD
     Route: 065
     Dates: start: 20090526, end: 20090613
  85. MEROPENEM [Concomitant]
     Dosage: 0.9 G, QD
     Route: 065
     Dates: start: 20090607, end: 20090611
  86. THYMOGLOBULIN [Suspect]
     Indication: BONE MARROW CONDITIONING REGIMEN
     Dosage: 40 MG, QD
     Route: 042
     Dates: start: 20090513, end: 20090514
  87. PREDNISOLONE [Concomitant]
     Indication: PROPHYLAXIS AGAINST GRAFT VERSUS HOST DISEASE
     Dosage: 2 MG, BID
     Route: 065
     Dates: start: 20090511, end: 20090513
  88. MIDAZOLAM [Concomitant]
     Indication: PRODUCT USED FOR UNKNOWN INDICATION
     Dosage: 2 ML, QD
     Route: 065
     Dates: start: 20090511, end: 20090511
  89. CLARITHROMYCIN [Concomitant]
     Dosage: 100 MG, QD
     Route: 065
     Dates: start: 20090514, end: 20090517
  90. CANDESARTAN CILEXETIL [Concomitant]
     Dosage: 6 MG, QD
     Route: 065
     Dates: start: 20090524, end: 20090526
  91. TACROLIMUS [Concomitant]
     Dosage: 0.6 MG, BID
     Route: 065
     Dates: start: 20090615, end: 20090618
  92. SULFAMETHOPRIM [Concomitant]
     Indication: PRODUCT USED FOR UNKNOWN INDICATION
     Dosage: 0.75 G, BID
     Route: 065
     Dates: start: 20090624, end: 20090625
  93. CYCLOPHOSPHAMIDE [Concomitant]
     Indication: PRODUCT USED FOR UNKNOWN INDICATION
     Dosage: 520 MG, QD
     Route: 065
     Dates: start: 20090515, end: 20090518
  94. MELPHALAN HYDROCHLORIDE [Concomitant]
     Indication: PRODUCT USED FOR UNKNOWN INDICATION
     Dosage: 60 MG, QD
     Route: 065
     Dates: start: 20090519, end: 20090519
  95. PREDNISOLONE SODIUM SUCCINATE INJ [Concomitant]
     Dosage: 2.5 MG, QD
     Route: 065
     Dates: start: 20090524, end: 20090526
  96. HAPTOGLOBINS [Concomitant]
     Indication: PRODUCT USED FOR UNKNOWN INDICATION
     Dosage: UNK
     Route: 065
     Dates: start: 20090521, end: 20090521
  97. METOCLOPRAMIDE [Concomitant]
     Indication: PROPHYLAXIS AGAINST GRAFT VERSUS HOST DISEASE
     Dosage: 3 MG, QD
     Route: 065
     Dates: start: 20090523, end: 20090526

REACTIONS (4)
  - HAEMOLYTIC ANAEMIA [None]
  - CEREBRAL HAEMORRHAGE [None]
  - ACUTE GRAFT VERSUS HOST DISEASE [None]
  - IDIOPATHIC THROMBOCYTOPENIC PURPURA [None]
